FAERS Safety Report 12825739 (Version 1)
Quarter: 2016Q4

REPORT INFORMATION
  Report Type: Spontaneous
  Country: US (occurrence: US)
  Receive Date: 20161007
  Receipt Date: 20161007
  Transmission Date: 20170207
  Serious: Yes (Hospitalization)
  Sender: FDA-Public Use
  Company Number: None

PATIENT
  Age: 53 Year
  Sex: Female
  Weight: 57.6 kg

DRUGS (11)
  1. ACIDOPHILUS [Concomitant]
     Active Substance: LACTOBACILLUS ACIDOPHILUS
  2. MAXALT [Concomitant]
     Active Substance: RIZATRIPTAN BENZOATE
  3. OMNARIS [Concomitant]
     Active Substance: CICLESONIDE
  4. METHADONE [Concomitant]
     Active Substance: METHADONE HYDROCHLORIDE
  5. MONTELUKAST [Concomitant]
     Active Substance: MONTELUKAST SODIUM
  6. EXCEDRIN MIGRAINE [Concomitant]
     Active Substance: ACETAMINOPHEN\ASPIRIN\CAFFEINE
  7. LINACLOTIDE [Concomitant]
     Active Substance: LINACLOTIDE
  8. PANTOPRAZOLE [Concomitant]
     Active Substance: PANTOPRAZOLE SODIUM
  9. CALCIUM [Concomitant]
     Active Substance: CALCIUM
  10. HYOSCYAMINE SULFATE. [Suspect]
     Active Substance: HYOSCYAMINE SULFATE
     Indication: IRRITABLE BOWEL SYNDROME
     Dosage: ?          QUANTITY:1 TABLET(S);?
     Route: 060
  11. ONDANSETRON [Concomitant]
     Active Substance: ONDANSETRON

REACTIONS (10)
  - Headache [None]
  - Product use issue [None]
  - Micturition urgency [None]
  - Pancreatitis [None]
  - Photophobia [None]
  - Urinary retention [None]
  - Confusional state [None]
  - Vision blurred [None]
  - Irritability [None]
  - Dry mouth [None]

NARRATIVE: CASE EVENT DATE: 20160930
